FAERS Safety Report 4798267-3 (Version None)
Quarter: 2005Q4

REPORT INFORMATION
  Report Type: 
  Country: None (occurrence: None)
  Receive Date: 20051011
  Receipt Date: 20051011
  Transmission Date: 20060501
  Serious: Yes (Disabling, Other)
  Sender: FDA-Public Use
  Company Number: None

PATIENT
  Sex: Female
  Weight: 106.1417 kg

DRUGS (2)
  1. LEVAQUIN [Suspect]
     Indication: INFECTION
     Dosage: 500MG ONCE DAILY PO
     Route: 048
     Dates: start: 20050922, end: 20050929
  2. LEVAQUIN [Suspect]
     Indication: MULTIPLE-DRUG RESISTANCE
     Dosage: 500MG ONCE DAILY PO
     Route: 048
     Dates: start: 20050922, end: 20050929

REACTIONS (9)
  - ARTHRALGIA [None]
  - DRUG TOXICITY [None]
  - HEADACHE [None]
  - HYPERSOMNIA [None]
  - INFLUENZA LIKE ILLNESS [None]
  - MUSCLE SPASMS [None]
  - NECK PAIN [None]
  - PAIN IN EXTREMITY [None]
  - SHOULDER PAIN [None]
